FAERS Safety Report 7490406-9 (Version None)
Quarter: 2011Q2

REPORT INFORMATION
  Report Type: 
  Country: None (occurrence: None)
  Receive Date: 20110519
  Receipt Date: 20110505
  Transmission Date: 20111010
  Serious: Yes (Other)
  Sender: FDA-Public Use
  Company Number: US-JNJFOC-20110306925

PATIENT
  Sex: Male
  Weight: 109.77 kg

DRUGS (5)
  1. METOPROLOL TARTRATE [Concomitant]
  2. DIGOXIN [Concomitant]
  3. ASPIRIN [Concomitant]
     Dosage: LOW DOSE
  4. REMICADE [Suspect]
     Indication: RHEUMATOID ARTHRITIS
     Route: 042
     Dates: start: 20010101
  5. METHOTREXATE [Concomitant]

REACTIONS (1)
  - ATRIAL FLUTTER [None]
